FAERS Safety Report 12987457 (Version 3)
Quarter: 2017Q1

REPORT INFORMATION
  Report Type: Spontaneous
  Country: HU (occurrence: HU)
  Receive Date: 20161130
  Receipt Date: 20170228
  Transmission Date: 20170428
  Serious: Yes (Other)
  Sender: FDA-Public Use
  Company Number: HU-PFIZER INC-2016555769

PATIENT
  Age: 50 Year
  Sex: Male

DRUGS (11)
  1. LAVESTRA [Concomitant]
     Dosage: 100 MG, 2 TIMES
  2. BROMOCRIPTIN [Concomitant]
     Dosage: 1X1
  3. TENAXUM [Concomitant]
     Active Substance: RILMENIDINE
     Dosage: 1 MG, 1X/DAY (IN THE EVENING)
  4. MERCKFORMIN [Concomitant]
     Active Substance: METFORMIN HYDROCHLORIDE
     Dosage: 1500 MG, UNK
  5. ISOPTIN SR [Concomitant]
     Active Substance: VERAPAMIL HYDROCHLORIDE
     Dosage: 240 MG, 2 TIMES
  6. COVEREX AS KOMB [Concomitant]
     Dosage: 1.25/5 MG DOSE, ONE TIME
  7. COVEREX [Concomitant]
     Dosage: 5 MG, 1X/DAY (IN THE EVENING)
  8. SOMAVERT [Suspect]
     Active Substance: PEGVISOMANT
     Indication: ACROMEGALY
     Dosage: 10 MG, DAILY
     Dates: start: 20110411
  9. SOMAVERT [Suspect]
     Active Substance: PEGVISOMANT
     Dosage: 10 MG, 2-3X/WEEK
  10. SOMATULINE AUTOGEL [Concomitant]
     Active Substance: LANREOTIDE ACETATE
     Dosage: 90 MG, MONTHLY
  11. AMLODIPIN /00972401/ [Concomitant]
     Active Substance: AMLODIPINE BESYLATE
     Dosage: 10 MG, UNK

REACTIONS (3)
  - Blood testosterone decreased [Not Recovered/Not Resolved]
  - Product use issue [Unknown]
  - Prostatitis [Not Recovered/Not Resolved]

NARRATIVE: CASE EVENT DATE: 201105
